FAERS Safety Report 16652590 (Version 1)
Quarter: 2019Q3

REPORT INFORMATION
  Report Type: Report from Study
  Country: US (occurrence: US)
  Receive Date: 20190731
  Receipt Date: 20190731
  Transmission Date: 20191004
  Serious: Yes (Hospitalization)
  Sender: FDA-Public Use
  Company Number: US-ACTELION-A-NJ2019-188661

PATIENT
  Sex: Female
  Weight: 74.38 kg

DRUGS (4)
  1. REVATIO [Concomitant]
     Active Substance: SILDENAFIL CITRATE
  2. OPSUMIT [Suspect]
     Active Substance: MACITENTAN
     Indication: PULMONARY ARTERIAL HYPERTENSION
     Dosage: 10 MG, QD
     Route: 048
  3. ELIQUIS [Concomitant]
     Active Substance: APIXABAN
  4. OXYGEN. [Concomitant]
     Active Substance: OXYGEN

REACTIONS (11)
  - Fluid retention [Unknown]
  - Intervertebral disc protrusion [Unknown]
  - Nasal congestion [Unknown]
  - Anaemia [Unknown]
  - Sneezing [Unknown]
  - Hypersensitivity [Unknown]
  - Gastrointestinal haemorrhage [Unknown]
  - Oxygen saturation decreased [Unknown]
  - Pain [Unknown]
  - Skin discolouration [Unknown]
  - Sinus headache [Unknown]
